FAERS Safety Report 14028610 (Version 2)
Quarter: 2020Q1

REPORT INFORMATION
  Report Type: Report from Study
  Country: US (occurrence: US)
  Receive Date: 20170930
  Receipt Date: 20200205
  Transmission Date: 20200409
  Serious: No
  Sender: FDA-Public Use
  Company Number: US-SA-2017SA058978

PATIENT
  Age: 54 Year
  Sex: Female
  Weight: 52.61 kg

DRUGS (12)
  1. AMITRIPTYLINE [Concomitant]
     Active Substance: AMITRIPTYLINE
     Dosage: UNK
  2. GABAPENTIN. [Concomitant]
     Active Substance: GABAPENTIN
     Dosage: UNK
  3. TERIFLUNOMIDE. [Suspect]
     Active Substance: TERIFLUNOMIDE
     Indication: MULTIPLE SCLEROSIS
     Dosage: 14 MG, QD
     Route: 048
     Dates: start: 20161107
  4. VITAMIN D3 [Concomitant]
     Active Substance: CHOLECALCIFEROL
     Dosage: UNK
  5. IBUPROFEN. [Concomitant]
     Active Substance: IBUPROFEN
     Dosage: UNK
  6. CALCIUM [Concomitant]
     Active Substance: CALCIUM
     Dosage: UNK
  7. EXFORGE [Concomitant]
     Active Substance: AMLODIPINE BESYLATE\VALSARTAN
     Indication: BLOOD PRESSURE MEASUREMENT
     Dosage: UNK
     Dates: start: 2019
  8. ACETYLSALICYLIC ACID [Concomitant]
     Active Substance: ASPIRIN
     Dosage: 325 MG
  9. FISH OIL [Concomitant]
     Active Substance: FISH OIL
     Dosage: UNK
  10. TOPROL XL [Concomitant]
     Active Substance: METOPROLOL SUCCINATE
     Dosage: UNK
  11. LAMICTAL [Concomitant]
     Active Substance: LAMOTRIGINE
     Dosage: UNK
  12. CYANOCOBALAMIN. [Concomitant]
     Active Substance: CYANOCOBALAMIN
     Dosage: UNK

REACTIONS (3)
  - Atypical pneumonia [Recovering/Resolving]
  - Alopecia [Unknown]
  - Blood cholesterol abnormal [Unknown]

NARRATIVE: CASE EVENT DATE: 2017
